FAERS Safety Report 21248110 (Version 3)
Quarter: 2022Q3

REPORT INFORMATION
  Report Type: Spontaneous
  Country: US (occurrence: US)
  Receive Date: 20220824
  Receipt Date: 20220905
  Transmission Date: 20221027
  Serious: Yes (Hospitalization)
  Sender: FDA-Public Use
  Company Number: US-GSKCCFUS-Case-01468061_AE-84006

PATIENT

DRUGS (1)
  1. BREO ELLIPTA [Suspect]
     Active Substance: FLUTICASONE FUROATE\VILANTEROL TRIFENATATE
     Indication: Chronic obstructive pulmonary disease
     Dosage: 1 PUFF(S), QD 100/25 MCG EVERY MORNING
     Route: 055
     Dates: start: 202204

REACTIONS (4)
  - Hip arthroplasty [Unknown]
  - Drug ineffective [Not Recovered/Not Resolved]
  - Product dispensing error [Unknown]
  - Product complaint [Unknown]

NARRATIVE: CASE EVENT DATE: 20220701
